FAERS Safety Report 16932757 (Version 3)
Quarter: 2020Q1

REPORT INFORMATION
  Report Type: Spontaneous
  Country: AR (occurrence: AR)
  Receive Date: 20191018
  Receipt Date: 20200210
  Transmission Date: 20200409
  Serious: Yes (Other)
  Sender: FDA-Public Use
  Company Number: AR-AMGEN-ARGSP2019172197

PATIENT
  Age: 79 Year
  Sex: Female

DRUGS (1)
  1. ENBREL [Suspect]
     Active Substance: ETANERCEPT
     Indication: RHEUMATOID ARTHRITIS
     Dosage: 50 MILLIGRAM, QWK
     Route: 065
     Dates: start: 20180419, end: 20190828

REACTIONS (5)
  - Ophthalmic herpes zoster [Recovered/Resolved]
  - Hand deformity [Not Recovered/Not Resolved]
  - Stress [Unknown]
  - Hordeolum [Recovering/Resolving]
  - Herpes zoster [Recovered/Resolved]

NARRATIVE: CASE EVENT DATE: 20190808
